FAERS Safety Report 16097202 (Version 2)
Quarter: 2019Q1

REPORT INFORMATION
  Report Type: Spontaneous
  Country: AU (occurrence: AU)
  Receive Date: 20190320
  Receipt Date: 20190326
  Transmission Date: 20190418
  Serious: Yes (Other)
  Sender: FDA-Public Use
  Company Number: AU-PFIZER INC-2019119993

PATIENT
  Age: 13 Year
  Sex: Male

DRUGS (18)
  1. ETOPOPHOS [Suspect]
     Active Substance: ETOPOSIDE PHOSPHATE
     Indication: ALK GENE REARRANGEMENT POSITIVE
     Dosage: 100 MG/M2, CYCLIC (/D DAY 4 AND 5)
  2. CYTARABINE. [Suspect]
     Active Substance: CYTARABINE
     Indication: ALK GENE REARRANGEMENT POSITIVE
     Dosage: 30 MG, CYCLIC
     Route: 037
  3. DEXAMETHASONE SODIUM PHOSPHATE. [Suspect]
     Active Substance: DEXAMETHASONE SODIUM PHOSPHATE
     Dosage: 5 MG/M2, CYCLIC (BD DAYS 1 TO 5)
  4. CYCLOPHOSPHAMIDE. [Suspect]
     Active Substance: CYCLOPHOSPHAMIDE
     Indication: ALK GENE REARRANGEMENT POSITIVE
     Dosage: 200 MG/M2, CYCLIC (/D DAY 1 TO 5)
  5. DEXAMETHASONE SODIUM PHOSPHATE. [Suspect]
     Active Substance: DEXAMETHASONE SODIUM PHOSPHATE
     Indication: ALK GENE REARRANGEMENT POSITIVE
     Dosage: 10 MG/M2, CYCLIC (DAILY, PREPHASE)
  6. DOXORUBICIN HCL [Suspect]
     Active Substance: DOXORUBICIN HYDROCHLORIDE
     Indication: ANAPLASTIC LARGE CELL LYMPHOMA T- AND NULL-CELL TYPES STAGE I
  7. METHOTREXATE SODIUM. [Suspect]
     Active Substance: METHOTREXATE SODIUM
     Dosage: UNK, CYCLIC (CYCLE B 1 G/M2 DAY 1)
  8. CYCLOPHOSPHAMIDE. [Suspect]
     Active Substance: CYCLOPHOSPHAMIDE
     Indication: ANAPLASTIC LARGE CELL LYMPHOMA T- AND NULL-CELL TYPES STAGE I
     Dosage: 200 MG/M2, CYCLIC (DAILY ON DAYS 1 AND 2)
  9. IFOSFAMIDE. [Suspect]
     Active Substance: IFOSFAMIDE
     Indication: ANAPLASTIC LARGE CELL LYMPHOMA T- AND NULL-CELL TYPES STAGE I
  10. METHOTREXATE SODIUM. [Suspect]
     Active Substance: METHOTREXATE SODIUM
     Indication: ALK GENE REARRANGEMENT POSITIVE
     Dosage: 12 MG, CYCLIC
     Route: 037
  11. ETOPOPHOS [Suspect]
     Active Substance: ETOPOSIDE PHOSPHATE
     Indication: ANAPLASTIC LARGE CELL LYMPHOMA T- AND NULL-CELL TYPES STAGE I
  12. DEXAMETHASONE SODIUM PHOSPHATE. [Suspect]
     Active Substance: DEXAMETHASONE SODIUM PHOSPHATE
     Indication: ANAPLASTIC LARGE CELL LYMPHOMA T- AND NULL-CELL TYPES STAGE I
     Dosage: 5 MG/M2, CYCLIC (BD DAYS 1 TO 5)
  13. DOXORUBICIN HCL [Suspect]
     Active Substance: DOXORUBICIN HYDROCHLORIDE
     Indication: ALK GENE REARRANGEMENT POSITIVE
     Dosage: 25 MG/M2, CYCLIC (/D DAYS 4 AND 5)
  14. CYTARABINE. [Suspect]
     Active Substance: CYTARABINE
     Indication: ANAPLASTIC LARGE CELL LYMPHOMA T- AND NULL-CELL TYPES STAGE I
     Dosage: 150 MG/M2, CYCLIC (BD DAYS 4 AND 5)
  15. HYDROCORTISONE. [Suspect]
     Active Substance: HYDROCORTISONE
     Indication: ALK GENE REARRANGEMENT POSITIVE
     Dosage: 15 MG, CYCLIC
     Route: 037
  16. METHOTREXATE SODIUM. [Suspect]
     Active Substance: METHOTREXATE SODIUM
     Indication: ANAPLASTIC LARGE CELL LYMPHOMA T- AND NULL-CELL TYPES STAGE I
     Dosage: UNK, CYCLIC (CYCLE A 1 G/M2 ON DAY 1)
  17. IFOSFAMIDE. [Suspect]
     Active Substance: IFOSFAMIDE
     Indication: ALK GENE REARRANGEMENT POSITIVE
     Dosage: 800 MG/M2, CYCLIC (/D DAYS 1 TO 5)
  18. HYDROCORTISONE. [Suspect]
     Active Substance: HYDROCORTISONE
     Indication: ANAPLASTIC LARGE CELL LYMPHOMA T- AND NULL-CELL TYPES STAGE I

REACTIONS (2)
  - Duodenal ulcer [Recovered/Resolved]
  - Incorrect route of product administration [Unknown]
